FAERS Safety Report 18078905 (Version 1)
Quarter: 2020Q3

REPORT INFORMATION
  Report Type: Spontaneous
  Country: US (occurrence: US)
  Receive Date: 20200728
  Receipt Date: 20200728
  Transmission Date: 20201103
  Serious: No
  Sender: FDA-Public Use
  Company Number: US-DRREDDYS-USA/USA/20/0125166

PATIENT
  Age: 66 Year
  Sex: Male
  Weight: 69.75 kg

DRUGS (1)
  1. HABITROL [Suspect]
     Active Substance: NICOTINE
     Indication: TOBACCO USER
     Route: 062
     Dates: start: 202007

REACTIONS (4)
  - Tenderness [Unknown]
  - Feeling abnormal [Unknown]
  - Pain [Unknown]
  - Application site pain [Unknown]
